FAERS Safety Report 9129028 (Version 1)
Quarter: 2013Q1

REPORT INFORMATION
  Report Type: Spontaneous
  Country: US (occurrence: US)
  Receive Date: 20130228
  Receipt Date: 20130228
  Transmission Date: 20140127
  Serious: Yes (Other)
  Sender: FDA-Public Use
  Company Number: US-BAYER-2013-024304

PATIENT
  Age: 42 Year
  Sex: Female

DRUGS (10)
  1. MIRENA [Suspect]
     Indication: CONTRACEPTION
     Dosage: 20 MCG/24HR, CONT
     Dates: start: 201012
  2. MIRENA [Suspect]
     Indication: CONTRACEPTION
     Dosage: 20 MCG/DL, CONT
     Dates: start: 200512, end: 201012
  3. PROZAC [Concomitant]
     Dosage: 60 MG, QD
  4. KLONOPIN [Concomitant]
     Dosage: 1 MG, PRN
  5. AMBIEN [Concomitant]
     Dosage: 10 MG, UNK
  6. ELAVIL [Concomitant]
     Indication: MIGRAINE
     Dosage: 10 MG, PRN
  7. SINGULAIR [Concomitant]
     Dosage: 10 MG, UNK
  8. SYMBICORT [Concomitant]
     Dosage: 2 PUFF(S), QD
  9. ALBUTEROL NEBULIZER [Concomitant]
  10. SKELAXIN [Concomitant]
     Indication: BACK PAIN

REACTIONS (31)
  - Iron deficiency [None]
  - Constipation [None]
  - Hot flush [None]
  - Night sweats [None]
  - Convulsion [None]
  - Stress [None]
  - Visual impairment [None]
  - Multiple sclerosis [None]
  - Conversion disorder [None]
  - Ovarian cyst [None]
  - Vitamin D deficiency [None]
  - Procedural pain [None]
  - Procedural pain [None]
  - Anxiety [None]
  - Asthenia [None]
  - Motor dysfunction [None]
  - Fall [None]
  - Visual impairment [None]
  - Diplopia [None]
  - Vision blurred [None]
  - Blindness transient [None]
  - Tremor [None]
  - Chills [None]
  - Red blood cell count decreased [None]
  - Haematocrit decreased [None]
  - Platelet count increased [None]
  - Monocyte count increased [None]
  - Eosinophil count increased [None]
  - Mean platelet volume decreased [None]
  - Menopausal symptoms [None]
  - Intervertebral disc protrusion [None]
